FAERS Safety Report 8988158 (Version 2)
Quarter: 2013Q1

REPORT INFORMATION
  Report Type: Spontaneous
  Country: GB (occurrence: GB)
  Receive Date: 20121227
  Receipt Date: 20130124
  Transmission Date: 20140127
  Serious: Yes (Other)
  Sender: FDA-Public Use
  Company Number: GB-JNJFOC-20121211830

PATIENT
  Age: 27 Year
  Sex: Female

DRUGS (6)
  1. ZIRTEK [Suspect]
     Route: 065
  2. ZIRTEK [Suspect]
     Indication: URTICARIA
     Route: 065
  3. KEPPRA [Concomitant]
     Indication: EPILEPSY
     Route: 065
  4. KEPPRA [Concomitant]
     Indication: EPILEPSY
     Route: 065
     Dates: start: 20050610
  5. LAMICTAL [Concomitant]
     Indication: EPILEPSY
     Route: 065
     Dates: start: 20010424
  6. FEXOFENADINE [Concomitant]

REACTIONS (1)
  - Convulsion [Not Recovered/Not Resolved]
